FAERS Safety Report 24885423 (Version 1)
Quarter: 2025Q1

REPORT INFORMATION
  Report Type: Spontaneous
  Country: CN (occurrence: CN)
  Receive Date: 20250124
  Receipt Date: 20250124
  Transmission Date: 20250409
  Serious: Yes (Other)
  Sender: MERCK
  Company Number: CN-009507513-2501CHN005255

PATIENT
  Age: 72 Year
  Sex: Male

DRUGS (2)
  1. PEMBROLIZUMAB [Suspect]
     Active Substance: PEMBROLIZUMAB
     Indication: Squamous cell carcinoma of lung
     Route: 065
  2. PACLITAXEL [Concomitant]
     Active Substance: PACLITAXEL
     Indication: Squamous cell carcinoma of lung

REACTIONS (6)
  - Cystitis haemorrhagic [Recovered/Resolved]
  - Immune-mediated cystitis [Recovered/Resolved]
  - Immune-mediated cystitis [Recovered/Resolved]
  - Cystitis haemorrhagic [Recovered/Resolved]
  - Underdose [Unknown]
  - Product use issue [Unknown]
